FAERS Safety Report 20784164 (Version 8)
Quarter: 2025Q1

REPORT INFORMATION
  Report Type: Report from Study
  Country: US (occurrence: US)
  Receive Date: 20220504
  Receipt Date: 20250225
  Transmission Date: 20250409
  Serious: Yes (Other)
  Sender: TAKEDA
  Company Number: US-TAKEDA-2021TUS053010

PATIENT
  Age: 47 Year
  Sex: Female

DRUGS (4)
  1. LANADELUMAB [Suspect]
     Active Substance: LANADELUMAB
     Indication: Prophylaxis
     Dosage: 300 MILLIGRAM, Q4WEEKS
  2. LANADELUMAB [Suspect]
     Active Substance: LANADELUMAB
     Indication: Hereditary angioedema
     Dosage: 300 MILLIGRAM, Q2WEEKS
  3. LANADELUMAB [Suspect]
     Active Substance: LANADELUMAB
     Dosage: 150 MILLIGRAM, Q2WEEKS
  4. LANADELUMAB [Suspect]
     Active Substance: LANADELUMAB
     Dosage: UNK UNK, Q4WEEKS

REACTIONS (11)
  - Pneumonia [Recovering/Resolving]
  - Pharyngitis streptococcal [Unknown]
  - Ear infection [Unknown]
  - Tongue biting [Recovered/Resolved]
  - Muscle strain [Recovered/Resolved]
  - Product dose omission issue [Recovered/Resolved]
  - Product use issue [Recovering/Resolving]
  - Psychotic disorder [Recovering/Resolving]
  - Feeling abnormal [Recovering/Resolving]
  - Hereditary angioedema [Recovered/Resolved]
  - Injection site pain [Recovered/Resolved]

NARRATIVE: CASE EVENT DATE: 20210819
